FAERS Safety Report 6163755-4 (Version None)
Quarter: 2009Q2

REPORT INFORMATION
  Report Type: 
  Country: None (occurrence: None)
  Receive Date: 20090422
  Receipt Date: 20011018
  Transmission Date: 20091009
  Serious: No
  Sender: FDA-Public Use
  Company Number: US-SOLVAY-00201003521

PATIENT
  Age: 58 Year
  Sex: Female
  Weight: 49.895 kg

DRUGS (2)
  1. ANDROGEL [Suspect]
     Indication: ACCIDENTAL EXPOSURE
     Dosage: DAILY DOSE: UNK. FREQUENCY:UNKNOWN
     Route: 062
     Dates: start: 20000601
  2. ESTRATEST H.S. [Suspect]
     Indication: ILL-DEFINED DISORDER
     Dosage: DAILY DOSE: 1 DF.
     Route: 048
     Dates: start: 19930101

REACTIONS (1)
  - ALOPECIA [None]
